FAERS Safety Report 23363557 (Version 6)
Quarter: 2025Q1

REPORT INFORMATION
  Report Type: Spontaneous
  Country: JP (occurrence: JP)
  Receive Date: 20240103
  Receipt Date: 20250127
  Transmission Date: 20250409
  Serious: Yes (Other)
  Sender: TAKEDA
  Company Number: JP-TAKEDA-2024TUS000758

PATIENT
  Age: 52 Year
  Sex: Male

DRUGS (10)
  1. LANSOPRAZOLE [Suspect]
     Active Substance: LANSOPRAZOLE
     Indication: Gastrooesophageal reflux disease
  2. VONOPRAZAN FUMARATE [Suspect]
     Active Substance: VONOPRAZAN FUMARATE
     Indication: Gastrooesophageal reflux disease
  3. SODIUM ALGINATE [Suspect]
     Active Substance: SODIUM ALGINATE
     Indication: Dyspepsia
  4. FAMOTIDINE [Suspect]
     Active Substance: FAMOTIDINE
     Indication: Dyspepsia
  5. ASPIRIN [Concomitant]
     Active Substance: ASPIRIN
  6. WARFARIN POTASSIUM [Concomitant]
     Active Substance: WARFARIN POTASSIUM
  7. CARVEDILOL [Concomitant]
     Active Substance: CARVEDILOL
  8. TELMISARTAN AND AMLODIPINE [Concomitant]
     Active Substance: AMLODIPINE BESYLATE\TELMISARTAN
  9. ATORVASTATIN CALCIUM [Concomitant]
     Active Substance: ATORVASTATIN CALCIUM
  10. FEBUXOSTAT [Concomitant]
     Active Substance: FEBUXOSTAT

REACTIONS (3)
  - Hypergastrinaemia [Recovered/Resolved]
  - Neuroendocrine tumour [Recovered/Resolved]
  - Drug ineffective [Unknown]
